FAERS Safety Report 5609580-1 (Version None)
Quarter: 2008Q1

REPORT INFORMATION
  Report Type: 
  Country: None (occurrence: None)
  Receive Date: 20080131
  Receipt Date: 20080108
  Transmission Date: 20080703
  Serious: No
  Sender: FDA-Public Use
  Company Number: US-BOEHRINGER INGELHEIM GMBH, GERMANY-2007-BP-26235BP

PATIENT
  Age: 84 Year
  Sex: Female
  Weight: 101 kg

DRUGS (9)
  1. SPIRIVA [Suspect]
     Indication: CHRONIC OBSTRUCTIVE PULMONARY DISEASE
     Dates: start: 20070315
  2. DILTIA XT [Concomitant]
  3. FUROSEMIDE [Concomitant]
  4. SYNTHROID [Concomitant]
  5. HYDRALAZINE HCL [Concomitant]
     Route: 048
  6. ADVAIR DISKUS 100/50 [Concomitant]
  7. ALBUTEROL [Concomitant]
  8. FLOVENT [Concomitant]
  9. ATROVENT [Concomitant]

REACTIONS (4)
  - EYE DISCHARGE [None]
  - EYELID MARGIN CRUSTING [None]
  - VISION BLURRED [None]
  - VISUAL ACUITY REDUCED [None]
